FAERS Safety Report 5204585-7 (Version None)
Quarter: 2007Q1

REPORT INFORMATION
  Report Type: 
  Country: None (occurrence: None)
  Receive Date: 20070110
  Receipt Date: 20060515
  Transmission Date: 20070707
  Serious: Yes (Other)
  Sender: FDA-Public Use
  Company Number: US-BRISTOL-MYERS SQUIBB COMPANY-13378955

PATIENT
  Age: 3 Decade
  Sex: Female

DRUGS (2)
  1. ABILIFY [Suspect]
     Indication: BIPOLAR DISORDER
     Dosage: DURATION OF THERAPY:  STARTED WITHIN THE LAST TWO WEEKS.
  2. LAMICTAL [Concomitant]

REACTIONS (1)
  - SUICIDAL IDEATION [None]
